FAERS Safety Report 25641328 (Version 4)
Quarter: 2025Q4

REPORT INFORMATION
  Report Type: Report from Study
  Country: US (occurrence: US)
  Receive Date: 20250804
  Receipt Date: 20251031
  Transmission Date: 20260117
  Serious: Yes (Death, Hospitalization, Other)
  Sender: ABBVIE
  Company Number: US-ABBVIE-6389492

PATIENT
  Age: 70 Year
  Sex: Male
  Weight: 90.718 kg

DRUGS (30)
  1. VYALEV [Suspect]
     Active Substance: FOSCARBIDOPA\FOSLEVODOPA
     Indication: Parkinson^s disease
     Dosage: 24 HOUR INFUSION
     Route: 058
     Dates: start: 20250723, end: 20250725
  2. VYALEV [Suspect]
     Active Substance: FOSCARBIDOPA\FOSLEVODOPA
     Dosage: 24 HOUR INFUSION, 120 MG/2400 MG/10 ML
     Route: 058
     Dates: start: 20250718, end: 20250723
  3. SEROQUEL [Concomitant]
     Active Substance: QUETIAPINE FUMARATE
     Indication: Bipolar disorder
     Dosage: ER : 5O MG 1 TAB(S) ORALLY AT BEDTIME, 1 TABLET (50 ?MG) BY MOUTH AT BEDTIME.
  4. DULOXETINE [Concomitant]
     Active Substance: DULOXETINE
     Indication: Depression
     Dosage: 60 MG DR CAPSULE
  5. ROSUVASTATIN [Concomitant]
     Active Substance: ROSUVASTATIN
     Indication: Blood cholesterol
  6. CRESTOR [Concomitant]
     Active Substance: ROSUVASTATIN CALCIUM
     Indication: Blood cholesterol abnormal
     Dosage: 10 MG, 1 TAB(S) ORALLY ONCE A DAY ,30 DAY(S) ,30
  7. GABAPENTIN [Concomitant]
     Active Substance: GABAPENTIN
     Indication: Pain
     Dosage: 300 MG, TAKE 2 CAPSULES BY MOUTH, ONCE DAILY AT BEDTIME ,90, 180 CAPSULE ,REFILLS: 3
  8. MIDODRINE [Concomitant]
     Active Substance: MIDODRINE
     Indication: Hypotension
  9. VITAMIN D2 [Concomitant]
     Active Substance: ERGOCALCIFEROL
     Indication: Vitamin supplementation
     Dosage: 1,250 MCG (50,000 UNIT) CAPSULE, ONE CAPSULE BY MOUTH EVERY 14 DAYS
  10. PROTONIX [Concomitant]
     Active Substance: PANTOPRAZOLE SODIUM
     Indication: Gastrooesophageal reflux disease
     Dosage: 40 MG EC TABLET; 1 TABLET BY MOUTH AT BEDTIME
  11. EXELON [Concomitant]
     Active Substance: RIVASTIGMINE TARTRATE
     Indication: Cognitive disorder
     Dosage: 3 MG, TAKE 1 CAPSULE BY MOUTH, TWICE DAILY, IN THE MORNING AND AT BEDTIME. 90, 180 CAPSULE ,REFIL...
  12. LAMOTRIGINE [Concomitant]
     Active Substance: LAMOTRIGINE
     Indication: Depression
     Dosage: 200 MG, 1 TAB(S) ORALLY ONCE A DAY ,3O DAYS ,3O TABLET
  13. ASPIRIN [Concomitant]
     Active Substance: ASPIRIN
     Indication: Product used for unknown indication
     Dosage: 81 MG, 1 TAB(S) ORALLY ONCE A DAY ,3O DAY(S)
  14. FLOMAX [Concomitant]
     Active Substance: TAMSULOSIN HYDROCHLORIDE
     Indication: Product used for unknown indication
     Dosage: 0.4 MG, 1 CAP(S) ORALLY ONCE A DAY ,30 DAY(S) ,3O?24 HR CAPSULE;
  15. KEPPRA [Concomitant]
     Active Substance: LEVETIRACETAM
     Indication: Product used for unknown indication
     Dosage: 1 TABLET (750 MG) BY MOUTH EVERY 12 (TWELVE) HOURS
  16. VIMPAT [Concomitant]
     Active Substance: LACOSAMIDE
     Indication: Product used for unknown indication
     Dosage: 1 TABLET (100 MG) BY MOUTH IN THE MORNING AND AT BEDTIME
  17. VITAMIN B12 [Concomitant]
     Active Substance: CYANOCOBALAMIN
     Indication: Product used for unknown indication
     Dosage: 1 ML (1,000 MCG) INTO THE SHOULDER, THIGH, OR BUTTOCKS EVERY 14 (FOURTEEN) DAYS.
  18. CYMBALTA [Concomitant]
     Active Substance: DULOXETINE HYDROCHLORIDE
     Indication: Product used for unknown indication
     Dosage: 6O MG, 1 CAP(S) ORALLY ONCE A DAY ,3O DAY(S) ,30
  19. PANTOPRAZOLE SODIUM [Concomitant]
     Active Substance: PANTOPRAZOLE SODIUM
     Indication: Product used for unknown indication
  20. RENVELA [Concomitant]
     Active Substance: SEVELAMER CARBONATE
     Indication: Product used for unknown indication
     Dosage: 1 TABLET (800 MG) BY MOUTH WITH BREAKFAST, WITH LUNCH, AND WITH EVENING MEAL. SWALLOW TABLET WHOL...
  21. AMMONIUM LACTATE [Concomitant]
     Active Substance: AMMONIUM LACTATE
     Indication: Product used for unknown indication
     Dosage: 1 APPLICATION TOPICALLY IF NEEDED FOR DRY SKIN
  22. NEURONTIN [Concomitant]
     Active Substance: GABAPENTIN
     Indication: Product used for unknown indication
     Dosage: TAKE 2 CAPSULES (600 MG) BY MOUTH AT BEDTIME
  23. BUTALBITAL, ACETAMINOPHEN, AND CAFFEINE [Concomitant]
     Active Substance: ACETAMINOPHEN\BUTALBITAL\CAFFEINE
     Indication: Product used for unknown indication
     Dosage: 50-325-40 MG TABLET; TAKE 1 TABLET BY ?MOUTH EVERY 6 (SIX) HOURS IF NEEDED FOR HEADACHES FOR UP T...
  24. DOCUSATE SODIUM\SENNOSIDE B [Concomitant]
     Active Substance: DOCUSATE SODIUM\SENNOSIDE B
     Indication: Product used for unknown indication
     Dosage: 2 TABLETS BY MOUTH AT BEDTIME
  25. QUETIAPINE [Concomitant]
     Active Substance: QUETIAPINE
     Indication: Bipolar disorder
  26. GLUCOTROL XL [Concomitant]
     Active Substance: GLIPIZIDE
     Indication: Product used for unknown indication
     Dosage: ER, 2.5 MG, 1 TAB(S) ORALLY ONCE A DAY ,3O DAY(S) ,30,?1 TABLET (5 MG) BY MOUTH 1 (ONE) TIME EACH...
  27. NIZORAL [Concomitant]
     Active Substance: KETOCONAZOLE
     Indication: Product used for unknown indication
     Dosage: APPLY 1 APPLICATION TOPICALLY IF NEEDED IN THE MORNING AND AT BEDTIME.
  28. RIVASTIGMINE [Concomitant]
     Active Substance: RIVASTIGMINE
     Indication: Cognitive disorder
  29. LAMICTAL [Concomitant]
     Active Substance: LAMOTRIGINE
     Indication: Product used for unknown indication
     Dosage: 1 TABLET (200 MG) BY MOUTH 1 (ONE) TIME EACH DAY.
  30. RITALIN [Concomitant]
     Active Substance: METHYLPHENIDATE HYDROCHLORIDE
     Indication: Product used for unknown indication
     Dosage: 1 TABLET (20 MG) BY MOUTH IN THE MORNING AND AT BEDTIME.

REACTIONS (33)
  - Infusion site infection [Fatal]
  - Spinal meningeal cyst [Not Recovered/Not Resolved]
  - Pyrexia [Recovered/Resolved]
  - Musculoskeletal disorder [Fatal]
  - Generalised tonic-clonic seizure [Recovered/Resolved]
  - Renal failure [Fatal]
  - Gait inability [Fatal]
  - Hyperhidrosis [Fatal]
  - Abdominal pain [Recovered/Resolved]
  - Weight decreased [Not Recovered/Not Resolved]
  - Dysuria [Unknown]
  - Dyspnoea [Unknown]
  - Fall [Unknown]
  - Sinus tachycardia [Unknown]
  - Sepsis [Unknown]
  - Infusion site rash [Recovered/Resolved]
  - Infusion site cellulitis [Recovered/Resolved]
  - Seizure [Fatal]
  - Insomnia [Unknown]
  - Dyskinesia [Unknown]
  - Haemodialysis [Unknown]
  - Facial paralysis [Unknown]
  - Mental impairment [Unknown]
  - Cerebrovascular accident [Unknown]
  - Subdural hygroma [Unknown]
  - Sensory disturbance [Unknown]
  - Subdural haematoma [Unknown]
  - Intracranial hypotension [Unknown]
  - Cerebral haematoma [Unknown]
  - Cerebrospinal fluid leakage [Unknown]
  - Cerebrospinal fistula [Unknown]
  - Asthenia [Not Recovered/Not Resolved]
  - Cerebral haemorrhage [Unknown]

NARRATIVE: CASE EVENT DATE: 20250101
